FAERS Safety Report 25082244 (Version 2)
Quarter: 2025Q1

REPORT INFORMATION
  Report Type: Spontaneous
  Country: KR (occurrence: KR)
  Receive Date: 20250317
  Receipt Date: 20250320
  Transmission Date: 20250409
  Serious: Yes (Hospitalization)
  Sender: SAMSUNG BIOEPIS
  Company Number: KR-SAMSUNG BIOEPIS-SB-2025-09239

PATIENT
  Age: 67 Year
  Sex: Female
  Weight: 43 kg

DRUGS (16)
  1. TRASTUZUMAB [Suspect]
     Active Substance: TRASTUZUMAB
     Indication: Gallbladder cancer
     Dosage: DOSE:8; LAST DOSE: 28-FEB-2025;
     Route: 042
     Dates: start: 20241224
  2. NIVOLUMAB [Suspect]
     Active Substance: NIVOLUMAB
     Indication: Gallbladder cancer
     Dosage: LAST DOSE: 28-FEB-2025;
     Route: 042
     Dates: start: 20241224
  3. GEMCITABINE [Suspect]
     Active Substance: GEMCITABINE
     Indication: Gallbladder cancer
     Dosage: DOSE: 1000;
     Route: 042
     Dates: start: 20241224, end: 20250307
  4. GEMCITABINE [Suspect]
     Active Substance: GEMCITABINE
  5. CISPLATIN [Suspect]
     Active Substance: CISPLATIN
     Indication: Gallbladder cancer
     Dosage: DOSE: 25;
     Route: 042
     Dates: start: 20241224, end: 20250307
  6. CISPLATIN [Suspect]
     Active Substance: CISPLATIN
  7. URSODIOL [Concomitant]
     Active Substance: URSODIOL
     Indication: Prophylaxis
     Dates: start: 20241223
  8. Godex [Concomitant]
     Indication: Prophylaxis
     Dates: start: 20241223
  9. DIETARY SUPPLEMENT\HERBALS\MILK THISTLE [Concomitant]
     Active Substance: MILK THISTLE
     Indication: Prophylaxis
     Dosage: 140;
     Dates: start: 20241223
  10. PROPACETAMOL HYDROCHLORIDE [Concomitant]
     Active Substance: PROPACETAMOL HYDROCHLORIDE
     Indication: Prophylaxis
     Dates: start: 20241224
  11. PENIRAMIN [Concomitant]
     Indication: Prophylaxis
     Dates: start: 20241224
  12. DONG A GASTER [Concomitant]
     Indication: Prophylaxis
     Dates: start: 20241224
  13. TYLENOL 8HR [Concomitant]
     Active Substance: ACETAMINOPHEN
     Indication: Prophylaxis
     Dosage: ER (EXTENDED RELEASE);
     Dates: start: 20250109
  14. NALOXONE HYDROCHLORIDE\OXYCODONE HYDROCHLORIDE [Concomitant]
     Active Substance: NALOXONE HYDROCHLORIDE\OXYCODONE HYDROCHLORIDE
     Indication: Prophylaxis
     Dosage: 20/10 MG;
     Dates: start: 20241226
  15. XANAX [Concomitant]
     Active Substance: ALPRAZOLAM
     Indication: Prophylaxis
     Dates: start: 20250131
  16. MACPERAN [METOCLOPRAMIDE] [Concomitant]
     Indication: Product used for unknown indication
     Dates: start: 20250128

REACTIONS (2)
  - Sepsis [Recovered/Resolved]
  - Off label use [Unknown]

NARRATIVE: CASE EVENT DATE: 20250306
